FAERS Safety Report 6366292-7 (Version None)
Quarter: 2009Q3

REPORT INFORMATION
  Report Type: 
  Country: None (occurrence: None)
  Receive Date: 20090921
  Receipt Date: 20090918
  Transmission Date: 20100115
  Serious: Yes (Other)
  Sender: FDA-Public Use
  Company Number: AU-ALLERGAN-0913090US

PATIENT
  Sex: Female

DRUGS (2)
  1. LUMIGAN [Suspect]
     Indication: GLAUCOMA
     Dosage: 1 GTT, QHS
     Route: 047
     Dates: start: 20040101
  2. DAPATAB [Concomitant]
     Indication: HYPERTENSION
     Dosage: 1 ORAL TABLET, Q.D.
     Route: 048

REACTIONS (3)
  - DEPRESSION [None]
  - PARAESTHESIA [None]
  - TEARFULNESS [None]
